FAERS Safety Report 6709648-2 (Version None)
Quarter: 2010Q2

REPORT INFORMATION
  Report Type: 
  Country: None (occurrence: None)
  Receive Date: 20100504
  Receipt Date: 20100426
  Transmission Date: 20101027
  Serious: Yes (Death, Life-Threatening, Hospitalization, Other)
  Sender: FDA-Public Use
  Company Number: NL-TEVA-230884ISR

PATIENT
  Age: 72 Year
  Sex: Female

DRUGS (21)
  1. CLOMIPRAMINE HCL [Suspect]
  2. SIMVASTATIN [Suspect]
  3. SIMVASTATIN [Suspect]
     Dates: start: 20090927
  4. VALPROIC ACID [Suspect]
     Dates: start: 20090916, end: 20090916
  5. VALPROIC ACID [Suspect]
     Dates: start: 20090922, end: 20090922
  6. VALPROIC ACID [Suspect]
     Dates: start: 20090927, end: 20090927
  7. CIPROFLOXACIN [Suspect]
     Dates: start: 20090930
  8. LEVOTHYROXINE [Suspect]
  9. OLANZAPINE [Suspect]
  10. PHENYTOIN [Suspect]
     Dates: start: 20090922, end: 20090922
  11. PHENYTOIN [Suspect]
     Dates: start: 20090924, end: 20090924
  12. PHENYTOIN [Suspect]
     Dates: start: 20090927, end: 20090927
  13. BOWEL DECONTAMINATION (NOS) [Suspect]
  14. LEVOTHYROXINE SODIUM [Concomitant]
     Dates: start: 20090927
  15. FLOXACILLIN SODIUM [Concomitant]
     Dates: start: 20090926
  16. PREDNISOLONE ACETATE [Concomitant]
     Dates: start: 20090926
  17. PANTOPRAZOLE SODIUM [Concomitant]
     Dates: start: 20090917
  18. ENOXAPARIN SODIUM [Concomitant]
     Dates: start: 20090917
  19. INSULIN [Concomitant]
  20. DURATEARS [Concomitant]
  21. CLONAZEPAM [Concomitant]

REACTIONS (12)
  - BLOOD ALBUMIN DECREASED [None]
  - DEATH [None]
  - DIARRHOEA [None]
  - EPILEPSY [None]
  - FALL [None]
  - GASTROENTERITIS [None]
  - HEADACHE [None]
  - HYPONATRAEMIA [None]
  - PSEUDOMEMBRANOUS COLITIS [None]
  - RESPIRATORY FAILURE [None]
  - SOMNOLENCE [None]
  - VOMITING [None]
